FAERS Safety Report 14386206 (Version 1)
Quarter: 2018Q1

REPORT INFORMATION
  Report Type: Spontaneous
  Country: US (occurrence: US)
  Receive Date: 20180115
  Receipt Date: 20180115
  Transmission Date: 20180509
  Serious: Yes (Other)
  Sender: FDA-Public Use
  Company Number: US-SA-2017SA074644

PATIENT
  Age: 74 Year
  Sex: Female
  Weight: 79.8 kg

DRUGS (14)
  1. VITAMIN B6 [Concomitant]
     Active Substance: PYRIDOXINE HYDROCHLORIDE
     Route: 065
     Dates: start: 2007, end: 2017
  2. HYDROCODONE [Concomitant]
     Active Substance: HYDROCODONE
  3. METHADONE [Concomitant]
     Active Substance: METHADONE HYDROCHLORIDE
  4. MINERALS NOS/VITAMINS NOS [Concomitant]
     Route: 065
     Dates: start: 2007, end: 2017
  5. GABAPENTIN. [Concomitant]
     Active Substance: GABAPENTIN
  6. NADOLOL. [Concomitant]
     Active Substance: NADOLOL
  7. PROZAC [Concomitant]
     Active Substance: FLUOXETINE HYDROCHLORIDE
  8. VITAMIN D [Concomitant]
     Active Substance: CHOLECALCIFEROL
     Route: 065
     Dates: start: 2007, end: 2017
  9. TAXOTERE [Suspect]
     Active Substance: DOCETAXEL
     Indication: BREAST CANCER
     Route: 051
     Dates: start: 20150706, end: 20150706
  10. VITAMIN B12 [Concomitant]
     Active Substance: CYANOCOBALAMIN
     Route: 065
     Dates: start: 2007, end: 2017
  11. LETROZOLE. [Concomitant]
     Active Substance: LETROZOLE
  12. ACYCLOVIR. [Concomitant]
     Active Substance: ACYCLOVIR
  13. TAXOTERE [Suspect]
     Active Substance: DOCETAXEL
     Indication: BREAST CANCER
     Route: 051
     Dates: start: 20150914, end: 20150914
  14. BENTYL [Concomitant]
     Active Substance: DICYCLOMINE HYDROCHLORIDE

REACTIONS (2)
  - Alopecia [Not Recovered/Not Resolved]
  - Psychological trauma [Unknown]

NARRATIVE: CASE EVENT DATE: 20160314
